FAERS Safety Report 6492338-1 (Version None)
Quarter: 2009Q4

REPORT INFORMATION
  Report Type: 
  Country: None (occurrence: None)
  Receive Date: 20091208
  Receipt Date: 20091130
  Transmission Date: 20100525
  Serious: Yes (Death)
  Sender: FDA-Public Use
  Company Number: 2009SP039137

PATIENT
  Age: 63 Year
  Sex: Female

DRUGS (3)
  1. MIRTAZAPINE [Suspect]
     Indication: DEPRESSION
     Dosage: 15 MG; QD; PO
     Route: 048
     Dates: start: 20091016
  2. ETHYL LOFLAZEPATE [Concomitant]
  3. ZOLPIDEM TARTRATE [Concomitant]

REACTIONS (4)
  - COMPLETED SUICIDE [None]
  - FALL [None]
  - MALAISE [None]
  - PAIN [None]
